FAERS Safety Report 12048895 (Version 1)
Quarter: 2016Q1

REPORT INFORMATION
  Report Type: Spontaneous
  Country: US (occurrence: None)
  Receive Date: 20160208
  Receipt Date: 20160208
  Transmission Date: 20160526
  Serious: Yes (Hospitalization, Disabling, Other)
  Sender: FDA-Public Use
  Company Number: None

PATIENT
  Age: 75 Year
  Sex: Female
  Weight: 58.97 kg

DRUGS (21)
  1. NEXIUM [Concomitant]
     Active Substance: ESOMEPRAZOLE MAGNESIUM
  2. SIMVASTATIN. [Concomitant]
     Active Substance: SIMVASTATIN
  3. KRIKLL OIL [Concomitant]
  4. XARELTO [Concomitant]
     Active Substance: RIVAROXABAN
  5. CALCIUM [Concomitant]
     Active Substance: CALCIUM
  6. FUROSEMIDE. [Concomitant]
     Active Substance: FUROSEMIDE
  7. POTASSIUM [Concomitant]
     Active Substance: POTASSIUM
  8. CALCIUM [Concomitant]
     Active Substance: CALCIUM
  9. VITAMIN E [Concomitant]
     Active Substance: .ALPHA.-TOCOPHEROL
  10. RESVERATROL [Concomitant]
     Active Substance: RESVERATROL
  11. ZOLOFT [Concomitant]
     Active Substance: SERTRALINE HYDROCHLORIDE
  12. TRAMADOL. [Concomitant]
     Active Substance: TRAMADOL
  13. DICYCLOMINE [Concomitant]
     Active Substance: DICYCLOMINE HYDROCHLORIDE
  14. FOCUS FACTOR [Concomitant]
  15. ALENDRONATE [Suspect]
     Active Substance: ALENDRONATE SODIUM
     Indication: OSTEOPOROSIS
     Dosage: 1 TABLET, ONCE WEEKLY, TAKEN BY MOUTH
  16. LEVOTHYROXINE. [Concomitant]
     Active Substance: LEVOTHYROXINE
  17. BIOTIN [Concomitant]
     Active Substance: BIOTIN
  18. CINNAMON. [Concomitant]
     Active Substance: CINNAMON
  19. CARTIA XT [Concomitant]
     Active Substance: DILTIAZEM HYDROCHLORIDE
  20. NYTROSTAT [Concomitant]
  21. TURMERIC [Concomitant]
     Active Substance: TURMERIC

REACTIONS (10)
  - Arthralgia [None]
  - Arthritis [None]
  - Ankle fracture [None]
  - Osteonecrosis [None]
  - Fall [None]
  - Pain [None]
  - Depression [None]
  - Gait disturbance [None]
  - Femur fracture [None]
  - Musculoskeletal stiffness [None]

NARRATIVE: CASE EVENT DATE: 20150512
